FAERS Safety Report 15981227 (Version 1)
Quarter: 2019Q1

REPORT INFORMATION
  Report Type: Spontaneous
  Country: US (occurrence: US)
  Receive Date: 20190219
  Receipt Date: 20190219
  Transmission Date: 20190418
  Serious: Yes (Other)
  Sender: FDA-Public Use
  Company Number: US-FRESENIUS KABI-FK201901720

PATIENT
  Age: 75 Year
  Sex: Female

DRUGS (7)
  1. VANCOMYCIN [Suspect]
     Active Substance: VANCOMYCIN
     Indication: SURGERY
     Dosage: 3 GRAMS PER 40 GRAMS OF CEMENT MATERIAL
     Route: 050
  2. TOBRAMYCIN. [Suspect]
     Active Substance: TOBRAMYCIN
     Indication: THERAPEUTIC PROCEDURE
  3. CEFEPIME (MANUFACTURER UNKNOWN) [Suspect]
     Active Substance: CEFEPIME HYDROCHLORIDE
     Indication: ABSCESS LIMB
     Route: 065
  4. VANCOMYCIN [Suspect]
     Active Substance: VANCOMYCIN
     Indication: THERAPEUTIC PROCEDURE
  5. TOBRAMYCIN. [Suspect]
     Active Substance: TOBRAMYCIN
     Indication: SURGERY
     Dosage: 3.6 GRAMS PER 40 GRAMS OF CEMENT MATERIAL
     Route: 050
  6. VANCOMYCIN (MANUFACTURER UNKNOWN) [Suspect]
     Active Substance: VANCOMYCIN
     Indication: ABSCESS LIMB
     Route: 042
  7. TOBRAMYCIN. [Suspect]
     Active Substance: TOBRAMYCIN
     Indication: DRUG IMPLANTATION
     Route: 050

REACTIONS (2)
  - Acute kidney injury [Recovered/Resolved]
  - Toxicity to various agents [Recovered/Resolved]
